FAERS Safety Report 18695148 (Version 1)
Quarter: 2021Q1

REPORT INFORMATION
  Report Type: Spontaneous
  Country: US (occurrence: US)
  Receive Date: 20210102
  Receipt Date: 20210102
  Transmission Date: 20210419
  Serious: No
  Sender: FDA-Public Use
  Company Number: None

PATIENT
  Age: 70 Year
  Sex: Female
  Weight: 56.25 kg

DRUGS (7)
  1. SIMVASTATIN. [Concomitant]
     Active Substance: SIMVASTATIN
  2. INSULIN PUMP [Concomitant]
     Active Substance: DEVICE\INSULIN NOS
  3. GLUCOSE MONITOR [Concomitant]
  4. FISH OIL [Concomitant]
     Active Substance: FISH OIL
  5. SYNTHROID [Concomitant]
     Active Substance: LEVOTHYROXINE SODIUM
  6. LYUMJEV [Suspect]
     Active Substance: INSULIN LISPRO-AABC
     Indication: TYPE 1 DIABETES MELLITUS
     Dosage: ?          QUANTITY:1 INJECTION(S);OTHER FREQUENCY:CONTINUOUS BASAL;OTHER ROUTE:VIA INSULIN PUMP?
     Dates: start: 20201226, end: 20210102
  7. DAILY VITAMIN [Concomitant]
     Active Substance: VITAMINS

REACTIONS (5)
  - Injection site abscess [None]
  - Injection site pain [None]
  - Injection site erythema [None]
  - Injection site swelling [None]
  - Inflammation [None]

NARRATIVE: CASE EVENT DATE: 20210102
